FAERS Safety Report 5840400-6 (Version None)
Quarter: 2008Q3

REPORT INFORMATION
  Report Type: 
  Country: None (occurrence: None)
  Receive Date: 20080811
  Receipt Date: 20080731
  Transmission Date: 20090109
  Serious: Yes (Death, Other)
  Sender: FDA-Public Use
  Company Number: DE-AMGEN-UK286254

PATIENT
  Sex: Female

DRUGS (4)
  1. NEULASTA [Suspect]
     Indication: CHEMOTHERAPY
     Route: 058
     Dates: start: 20080606
  2. BENDAMUSTINE [Suspect]
  3. ANTIBIOTICS NOS [Suspect]
     Route: 065
  4. RITUXIMAB [Concomitant]
     Route: 065

REACTIONS (6)
  - CHRONIC LYMPHOCYTIC LEUKAEMIA [None]
  - COUGH [None]
  - DIARRHOEA [None]
  - DYSPNOEA [None]
  - LYMPHOMA [None]
  - NEUTROPHIL TOXIC GRANULATION PRESENT [None]
